FAERS Safety Report 5491237-1 (Version None)
Quarter: 2007Q4

REPORT INFORMATION
  Report Type: 
  Country: None (occurrence: None)
  Receive Date: 20071017
  Receipt Date: 20071012
  Transmission Date: 20080405
  Serious: Yes (Life-Threatening, Hospitalization)
  Sender: FDA-Public Use
  Company Number: CLOF-10695

PATIENT
  Age: 21 Year
  Sex: Female
  Weight: 68.1 kg

DRUGS (24)
  1. CLOFARABINE [Suspect]
     Indication: ACUTE LYMPHOCYTIC LEUKAEMIA
     Dosage: 40 MG/M2 QD X 3 IV
     Route: 042
     Dates: start: 20070927, end: 20070929
  2. CYCLOPHOSPHAMIDE [Suspect]
     Indication: ACUTE LYMPHOCYTIC LEUKAEMIA
     Dosage: 300 MG/M2 ONCE IV
     Route: 042
     Dates: start: 20070926, end: 20070926
  3. CYCLOPHOSPHAMIDE [Suspect]
     Indication: ACUTE LYMPHOCYTIC LEUKAEMIA
     Dosage: 300 MG/M2 BID IV
     Route: 042
     Dates: start: 20070927, end: 20070929
  4. ZOFRAN [Concomitant]
  5. ALLOPURINOL [Concomitant]
  6. CEFEPIME [Concomitant]
  7. HALOPERIDOL [Concomitant]
  8. HYDRALAZINE HCL [Concomitant]
  9. HYDROMORPHONE HCL [Concomitant]
  10. INSULIN [Concomitant]
  11. ITRACONAZOLE [Concomitant]
  12. ATIVAN [Concomitant]
  13. MEDROXYPROGESTERONE [Concomitant]
  14. METHYLPREDNISOLONE [Concomitant]
  15. METOPROLOL TARTRATE [Concomitant]
  16. PANTOPRAZOLE SODIUM [Concomitant]
  17. SEVELAMER [Concomitant]
  18. TEMAZEPAM [Concomitant]
  19. VALACYCLOVIR HCL [Concomitant]
  20. HYDROXYZINE [Concomitant]
  21. LEVAQUIN [Concomitant]
  22. NORINYL [Concomitant]
  23. ANTIPROTOZOAL [Concomitant]
  24. VALTREX [Concomitant]

REACTIONS (6)
  - BLOOD POTASSIUM INCREASED [None]
  - DIABETIC KETOACIDOSIS [None]
  - HEADACHE [None]
  - HYPERBILIRUBINAEMIA [None]
  - PANCREATITIS [None]
  - TACHYCARDIA [None]
